FAERS Safety Report 8978037 (Version 1)
Quarter: 2012Q4

REPORT INFORMATION
  Report Type: 
  Country: US (occurrence: US)
  Receive Date: 20121220
  Receipt Date: 20121220
  Transmission Date: 20130627
  Serious: No
  Sender: FDA-Public Use
  Company Number: US-PFIZER INC-2012321933

PATIENT
  Age: 2 Year
  Sex: Female
  Weight: 13.15 kg

DRUGS (6)
  1. VFEND [Suspect]
     Indication: CEREBRAL FUNGAL INFECTION
     Dosage: UNK, 2x/day
     Route: 042
     Dates: start: 201207
  2. VFEND [Suspect]
     Dosage: UNK, 2x/day
     Route: 042
     Dates: start: 20121114
  3. VFEND [Suspect]
     Indication: CEREBRAL FUNGAL INFECTION
     Dosage: UNK
     Route: 048
     Dates: start: 2012
  4. VFEND [Suspect]
     Dosage: UNK
     Route: 048
  5. RANITIDINE HYDROCHLORIDE [Concomitant]
     Indication: PROPHYLAXIS AGAINST GASTROINTESTINAL ULCER
     Dosage: 30 mg, 2x/day
  6. AMPHOTERICIN B [Concomitant]
     Indication: CEREBRAL FUNGAL INFECTION
     Dosage: UNK , daily
     Dates: start: 20121128

REACTIONS (1)
  - Drug level fluctuating [Unknown]
